FAERS Safety Report 4773729-3 (Version None)
Quarter: 2005Q3

REPORT INFORMATION
  Report Type: 
  Country: None (occurrence: None)
  Receive Date: 20050920
  Receipt Date: 20050907
  Transmission Date: 20060218
  Serious: Yes (Other)
  Sender: FDA-Public Use
  Company Number: US-GLAXOSMITHKLINE-A0573288A

PATIENT
  Sex: Male

DRUGS (1)
  1. DEBROX [Suspect]
     Indication: DRUG USE FOR UNKNOWN INDICATION
     Route: 001

REACTIONS (1)
  - DEAFNESS UNILATERAL [None]
